FAERS Safety Report 8416162-5 (Version None)
Quarter: 2012Q2

REPORT INFORMATION
  Report Type: 
  Country: None (occurrence: None)
  Receive Date: 20120530
  Receipt Date: 20120518
  Transmission Date: 20120825
  Serious: Yes (Life-Threatening, Hospitalization, Other)
  Sender: FDA-Public Use
  Company Number: AUR-APL-2012-02175

PATIENT
  Age: 75 Year
  Sex: Male
  Weight: 70 kg

DRUGS (3)
  1. BISOPROLOL FUMARATE [Suspect]
     Indication: PRODUCT USED FOR UNKNOWN INDICATION
     Dosage: (25 MG), ORAL
     Route: 048
     Dates: start: 20120229
  2. AMIODARONE HCL [Concomitant]
  3. ALLOPURINOL [Concomitant]

REACTIONS (3)
  - CHEST PAIN [None]
  - WRONG DRUG ADMINISTERED [None]
  - DYSPNOEA [None]
